FAERS Safety Report 24075143 (Version 5)
Quarter: 2024Q4

REPORT INFORMATION
  Report Type: Spontaneous
  Country: US (occurrence: US)
  Receive Date: 20240710
  Receipt Date: 20241017
  Transmission Date: 20250114
  Serious: Yes (Hospitalization)
  Sender: NEUROCRINE BIOSCIENCES
  Company Number: US-NEUROCRINE BIOSCIENCES INC.-2024NBI06513

PATIENT
  Age: 71 Year
  Sex: Male

DRUGS (16)
  1. INGREZZA [Suspect]
     Active Substance: VALBENAZINE
     Indication: Tardive dyskinesia
     Dosage: 80 MILLIGRAM, QD
     Route: 048
     Dates: start: 20241004
  2. INGREZZA [Suspect]
     Active Substance: VALBENAZINE
     Dosage: 40 MILLIGRAM, QD
     Route: 048
     Dates: start: 20240621
  3. BENADRYL [Concomitant]
     Active Substance: DIPHENHYDRAMINE HYDROCHLORIDE
  4. TYLENOL PM [Concomitant]
     Active Substance: ACETAMINOPHEN\DIPHENHYDRAMINE
     Indication: Insomnia
     Dosage: AT NIGHT
  5. VITAMINS [Concomitant]
     Active Substance: VITAMINS
     Dosage: UNKNOWN
     Route: 065
  6. MINERALS [Concomitant]
     Active Substance: MINERALS
     Dosage: UNKNOWN
     Route: 065
  7. MAGNESIUM [Concomitant]
     Active Substance: MAGNESIUM
     Dosage: UNKNOWN
     Route: 065
  8. VITAMINS [Concomitant]
     Active Substance: VITAMINS
     Dosage: UNKNOWN
     Route: 065
  9. BENADRYL [Concomitant]
     Active Substance: DIPHENHYDRAMINE HYDROCHLORIDE
     Dosage: UNKNOWN
     Route: 065
  10. LOSARTAN [Concomitant]
     Active Substance: LOSARTAN
     Dosage: UNKNOWN
     Route: 065
  11. PRIMIDONE [Concomitant]
     Active Substance: PRIMIDONE
     Dosage: UNKNOWN
     Route: 065
  12. CALCIUM CARBONATE [Concomitant]
     Active Substance: CALCIUM CARBONATE
  13. FUROSEMIDE [Concomitant]
     Active Substance: FUROSEMIDE
     Dosage: UNKNOWN
     Route: 065
  14. SPIRONOLACTONE [Concomitant]
     Active Substance: SPIRONOLACTONE
     Dosage: UNKNOWN
     Route: 065
  15. TYLENOL [Concomitant]
     Active Substance: ACETAMINOPHEN
     Dosage: UNKNOWN
     Route: 065
  16. KLONOPIN [Concomitant]
     Active Substance: CLONAZEPAM
     Dosage: UNKNOWN
     Route: 065

REACTIONS (7)
  - Bradycardia [Not Recovered/Not Resolved]
  - Oxygen saturation decreased [Recovered/Resolved]
  - Pain [Recovering/Resolving]
  - Atrioventricular block first degree [Not Recovered/Not Resolved]
  - Therapeutic response unexpected [Recovered/Resolved]
  - Mobility decreased [Recovering/Resolving]
  - Asthenia [Recovering/Resolving]

NARRATIVE: CASE EVENT DATE: 20240626
